FAERS Safety Report 12770763 (Version 17)
Quarter: 2017Q4

REPORT INFORMATION
  Report Type: Report from Study
  Country: FR (occurrence: FR)
  Receive Date: 20160922
  Receipt Date: 20171110
  Transmission Date: 20180320
  Serious: Yes (Other)
  Sender: FDA-Public Use
  Company Number: FR-JNJFOC-20160215981

PATIENT
  Age: 67 Year
  Sex: Female
  Weight: 75 kg

DRUGS (13)
  1. SIMPONI [Suspect]
     Active Substance: GOLIMUMAB
     Indication: PSORIATIC ARTHROPATHY
     Route: 058
     Dates: start: 20160629
  2. SIMPONI [Suspect]
     Active Substance: GOLIMUMAB
     Indication: PSORIATIC ARTHROPATHY
     Dosage: 4TH INJECTION
     Route: 058
     Dates: start: 20160407
  3. SIMPONI [Suspect]
     Active Substance: GOLIMUMAB
     Indication: PSORIATIC ARTHROPATHY
     Route: 058
     Dates: start: 20170104
  4. SIMPONI [Suspect]
     Active Substance: GOLIMUMAB
     Indication: PSORIATIC ARTHROPATHY
     Route: 058
     Dates: start: 20161011
  5. SIMPONI [Suspect]
     Active Substance: GOLIMUMAB
     Indication: PSORIATIC ARTHROPATHY
     Dosage: 5TH INJECTION
     Route: 058
     Dates: start: 20160505
  6. SIMPONI [Suspect]
     Active Substance: GOLIMUMAB
     Indication: PSORIATIC ARTHROPATHY
     Route: 058
     Dates: start: 20170815
  7. SIMPONI [Suspect]
     Active Substance: GOLIMUMAB
     Indication: PSORIATIC ARTHROPATHY
     Route: 058
     Dates: start: 20160107
  8. SIMPONI [Suspect]
     Active Substance: GOLIMUMAB
     Indication: PSORIATIC ARTHROPATHY
     Route: 058
     Dates: start: 20170912, end: 20171013
  9. SIMPONI [Suspect]
     Active Substance: GOLIMUMAB
     Indication: PSORIATIC ARTHROPATHY
     Route: 058
     Dates: start: 20161108
  10. SIMPONI [Suspect]
     Active Substance: GOLIMUMAB
     Indication: PSORIATIC ARTHROPATHY
     Route: 058
     Dates: start: 20170201
  11. SIMPONI [Suspect]
     Active Substance: GOLIMUMAB
     Indication: PSORIATIC ARTHROPATHY
     Route: 058
     Dates: start: 20160727
  12. SIMPONI [Suspect]
     Active Substance: GOLIMUMAB
     Indication: PSORIATIC ARTHROPATHY
     Route: 058
     Dates: start: 20161206
  13. SIMPONI [Suspect]
     Active Substance: GOLIMUMAB
     Indication: PSORIATIC ARTHROPATHY
     Route: 058
     Dates: start: 20170520

REACTIONS (62)
  - Colitis microscopic [Unknown]
  - Chalazion [Unknown]
  - Pain in extremity [Unknown]
  - Peripheral swelling [Unknown]
  - Rotator cuff syndrome [Unknown]
  - Nail disorder [Unknown]
  - Fatigue [Unknown]
  - Joint swelling [Unknown]
  - Off label use [Unknown]
  - Oedema peripheral [Unknown]
  - Muscle contracture [Unknown]
  - Visual field defect [Unknown]
  - Milia [Unknown]
  - Therapeutic response decreased [Unknown]
  - Fall [Unknown]
  - Psoriasis [Unknown]
  - Hypokinesia [Unknown]
  - Groin pain [Unknown]
  - Musculoskeletal pain [Not Recovered/Not Resolved]
  - Pelvic pain [Unknown]
  - Vertigo [Unknown]
  - Back pain [Unknown]
  - Insomnia [Unknown]
  - Post-traumatic neck syndrome [Unknown]
  - Road traffic accident [Unknown]
  - Dysgraphia [Unknown]
  - Gait disturbance [Unknown]
  - Malaise [Unknown]
  - Psoriasis [Unknown]
  - Epistaxis [Unknown]
  - Ultrasound Doppler [Unknown]
  - Product use issue [Unknown]
  - Fungal skin infection [Unknown]
  - Herpes virus infection [Unknown]
  - Headache [Unknown]
  - Pain [Not Recovered/Not Resolved]
  - Impaired driving ability [Unknown]
  - Rib fracture [Unknown]
  - Therapeutic response unexpected [Unknown]
  - General physical condition abnormal [Unknown]
  - Sleep disorder [Unknown]
  - Incorrect dose administered [Unknown]
  - Blepharitis [Unknown]
  - Gastrointestinal tract irritation [Unknown]
  - Spinal osteoarthritis [Not Recovered/Not Resolved]
  - Oedema peripheral [Not Recovered/Not Resolved]
  - Dizziness [Not Recovered/Not Resolved]
  - Gastrointestinal infection [Not Recovered/Not Resolved]
  - Pain [Unknown]
  - Middle insomnia [Unknown]
  - Disturbance in social behaviour [Unknown]
  - Foot deformity [Unknown]
  - Complex regional pain syndrome [Unknown]
  - Psoriatic arthropathy [Not Recovered/Not Resolved]
  - Arthralgia [Unknown]
  - Musculoskeletal stiffness [Not Recovered/Not Resolved]
  - Inappropriate schedule of drug administration [Unknown]
  - Haematoma [Unknown]
  - Shoulder deformity [Unknown]
  - International normalised ratio abnormal [Unknown]
  - Paronychia [Unknown]
  - Ingrowing nail [Unknown]

NARRATIVE: CASE EVENT DATE: 2016
